FAERS Safety Report 14862047 (Version 1)
Quarter: 2018Q2

REPORT INFORMATION
  Report Type: Spontaneous
  Country: NL (occurrence: NL)
  Receive Date: 20180508
  Receipt Date: 20180508
  Transmission Date: 20180711
  Serious: Yes (Other)
  Sender: FDA-Public Use
  Company Number: PHHY2018NL003296

PATIENT
  Sex: Female

DRUGS (2)
  1. AMOXICILLIN CLAVULANIC ACID SANDOZ [Suspect]
     Active Substance: AMOXICILLIN\CLAVULANIC ACID
     Dosage: 0.5 DF, UNK
     Route: 065
  2. AMOXICILLIN CLAVULANIC ACID SANDOZ [Suspect]
     Active Substance: AMOXICILLIN\CLAVULANIC ACID
     Indication: PYELONEPHRITIS
     Dosage: 1 DF, UNK
     Route: 065

REACTIONS (2)
  - Heart rate increased [Recovered/Resolved]
  - Renal impairment [Recovered/Resolved]
